FAERS Safety Report 8033974 (Version 2)
Quarter: 2012Q4

REPORT INFORMATION
  Report Type: 
  Country: VE (occurrence: VE)
  Receive Date: 20110713
  Receipt Date: 20121226
  Transmission Date: 20130627
  Serious: Yes (Death, Hospitalization, Other)
  Sender: FDA-Public Use
  Company Number: PHHY2011VE38692

PATIENT
  Age: 86 None
  Sex: Female

DRUGS (1)
  1. DIOVAN HCT [Suspect]
     Indication: HYPERTENSION
     Dosage: 1 DF (80 mg vals/ 12.5 mg HCTZ), daily
     Route: 048

REACTIONS (8)
  - Cerebral haemorrhage [Fatal]
  - Ovarian cancer [Fatal]
  - Fall [Unknown]
  - Scoliosis [Unknown]
  - Back pain [Unknown]
  - Cardiac disorder [Unknown]
  - Pain in extremity [Unknown]
  - Asthenia [Unknown]
